FAERS Safety Report 9286989 (Version 1)
Quarter: 2013Q2

REPORT INFORMATION
  Report Type: Spontaneous
  Country: US (occurrence: None)
  Receive Date: 20130508
  Receipt Date: 20130508
  Transmission Date: 20140414
  Serious: Yes (Other)
  Sender: FDA-Public Use
  Company Number: DSU-2013-03203

PATIENT
  Age: 73 Year
  Sex: Female

DRUGS (7)
  1. WELCHOL [Suspect]
     Indication: HYPERCHOLESTEROLAEMIA
     Route: 048
     Dates: start: 2013, end: 201304
  2. AMLODIPINE(AMLODIPINE) (5 MILLIGRAM) (AMLODIPINE) [Concomitant]
  3. LASIX(FUROSEMIDE)(40 MILLIGRAM)(FUROSEMIDE) [Concomitant]
  4. KCL(POTASSIUM CHLORIDE)(20 MILLIEQUIVALENTS)(POTASSIUM CHLORIDE) [Concomitant]
  5. DIGOXIN(DIGOXIN)(0.25 MILLIGRAM) (DIGOXIN) [Concomitant]
  6. ATENOLOL(ATENOLOL)(100 MILLIGRAM)(ATENOLOL) [Concomitant]
  7. LEVOTHYROXINE(LEVOTHYROXINE)(200 MILLIGRAM)(LEVOTHYROXINE) [Concomitant]

REACTIONS (1)
  - Thyroid disorder [None]
